FAERS Safety Report 6834876-5 (Version None)
Quarter: 2010Q3

REPORT INFORMATION
  Report Type: 
  Country: None (occurrence: None)
  Receive Date: 20100712
  Receipt Date: 20071008
  Transmission Date: 20110219
  Serious: No
  Sender: FDA-Public Use
  Company Number: US-PFIZER INC-2007034132

PATIENT
  Sex: Female
  Weight: 60.3 kg

DRUGS (5)
  1. CHANTIX [Suspect]
     Indication: SMOKING CESSATION THERAPY
     Route: 048
     Dates: start: 20070326
  2. QUINAPRIL [Concomitant]
  3. NEXIUM [Concomitant]
  4. TRICOR [Concomitant]
     Indication: BLOOD PRESSURE
  5. NORVASC [Concomitant]
     Indication: BLOOD CHOLESTEROL INCREASED

REACTIONS (4)
  - ABDOMINAL PAIN UPPER [None]
  - ANGER [None]
  - DRUG INEFFECTIVE [None]
  - MIGRAINE [None]
